FAERS Safety Report 24252174 (Version 1)
Quarter: 2024Q3

REPORT INFORMATION
  Report Type: Spontaneous
  Country: US (occurrence: US)
  Receive Date: 20240827
  Receipt Date: 20240827
  Transmission Date: 20241016
  Serious: Yes (Other)
  Sender: ALKEM
  Company Number: US-ALKEM LABORATORIES LIMITED-US-ALKEM-2024-16638

PATIENT
  Sex: Male
  Weight: 88.435 kg

DRUGS (3)
  1. FINASTERIDE [Suspect]
     Active Substance: FINASTERIDE
     Indication: Alopecia
     Dosage: 1 MILLIGRAM, QD
     Route: 048
     Dates: end: 202406
  2. Metformin ER Tablet [Concomitant]
     Indication: Diabetes mellitus
     Dosage: UNK
     Route: 065
  3. Tamsulosin capsule 0.4mg [Concomitant]
     Indication: Bladder disorder
     Dosage: UNK
     Route: 065

REACTIONS (3)
  - Urinary retention [Recovering/Resolving]
  - Erectile dysfunction [Recovering/Resolving]
  - Prostatomegaly [Recovering/Resolving]
